FAERS Safety Report 17134767 (Version 1)
Quarter: 2019Q4

REPORT INFORMATION
  Report Type: Spontaneous
  Country: MY (occurrence: MY)
  Receive Date: 20191210
  Receipt Date: 20191210
  Transmission Date: 20200122
  Serious: Yes (Other)
  Sender: FDA-Public Use
  Company Number: NVSC2019MY060173

PATIENT
  Age: 1 Year
  Sex: Male

DRUGS (1)
  1. STANDACILLIN [Suspect]
     Active Substance: AMPICILLIN
     Indication: PNEUMONIA BACTERIAL
     Dosage: 500 MG, Q6H
     Route: 042

REACTIONS (2)
  - Rash maculo-papular [Recovering/Resolving]
  - Erythema [Recovering/Resolving]
